FAERS Safety Report 6788888 (Version 2)
Quarter: 2013Q1

REPORT INFORMATION
  Report Type: Spontaneous
  Country: GB (occurrence: None)
  Receive Date: 20080929
  Receipt Date: 20130114
  Transmission Date: 20140127
  Serious: No
  Sender: FDA-Public Use
  Company Number: 2008AP002493

PATIENT
  Sex: Male

DRUGS (3)
  1. CARBAMAZEPINE [Suspect]
     Dosage: 1200 MG; QD; TRPL
     Route: 064
  2. TOPAMAX [Suspect]
     Dosage: 500 MG; QD TRPL
     Route: 064
  3. CLOBAZAM [Suspect]
     Dosage: 10 MG; QD TRPL
     Route: 064

REACTIONS (2)
  - Developmental hip dysplasia [None]
  - Maternal drugs affecting foetus [None]
